FAERS Safety Report 15849269 (Version 1)
Quarter: 2019Q1

REPORT INFORMATION
  Report Type: Spontaneous
  Country: KR (occurrence: KR)
  Receive Date: 20190121
  Receipt Date: 20190121
  Transmission Date: 20190417
  Serious: Yes (Other)
  Sender: FDA-Public Use
  Company Number: KR-SA-2019SA011540

PATIENT
  Sex: Female

DRUGS (13)
  1. CRIZOTINIB [Concomitant]
     Active Substance: CRIZOTINIB
     Dosage: UNK
     Dates: start: 20160608, end: 20171217
  2. TAXOTERE [Suspect]
     Active Substance: DOCETAXEL
     Dosage: UNK, QW
     Dates: start: 20130108, end: 20130108
  3. CISPLATIN. [Suspect]
     Active Substance: CISPLATIN
     Indication: LUNG NEOPLASM MALIGNANT
     Dosage: UNK, QW
     Dates: start: 20121122, end: 20121122
  4. ALIMTA [Concomitant]
     Active Substance: PEMETREXED DISODIUM
     Dosage: UNK
     Dates: start: 20131101, end: 20140915
  5. DALTEPARIN SODIUM [Concomitant]
     Active Substance: DALTEPARIN SODIUM
     Dosage: 7500UNIT/0.3ML
  6. CISPLATIN. [Suspect]
     Active Substance: CISPLATIN
     Dosage: UNK, QW
     Dates: start: 20130108, end: 20130108
  7. ALECTINIB. [Concomitant]
     Active Substance: ALECTINIB
  8. TAXOTERE [Suspect]
     Active Substance: DOCETAXEL
     Indication: LUNG NEOPLASM MALIGNANT
     Dosage: UNK, QW
     Dates: start: 20121122, end: 20121122
  9. TAXOTERE [Suspect]
     Active Substance: DOCETAXEL
     Dosage: UNK, QW
     Dates: start: 20151208, end: 20151208
  10. LORLATINIB [Concomitant]
     Active Substance: LORLATINIB
  11. VINORELBINE [Concomitant]
     Active Substance: VINORELBINE\VINORELBINE TARTRATE
     Dosage: UNK
     Dates: start: 20150112, end: 20150424
  12. TAXOTERE [Suspect]
     Active Substance: DOCETAXEL
     Dosage: UNK, QW
     Dates: start: 20160106, end: 20160106
  13. CERITINIB [Concomitant]
     Active Substance: CERITINIB
     Dosage: UNK
     Dates: start: 20130506, end: 20131027

REACTIONS (8)
  - Adrenal gland cancer [Unknown]
  - Pneumocystis jirovecii pneumonia [Unknown]
  - Therapeutic response decreased [Unknown]
  - Condition aggravated [Unknown]
  - Weight decreased [Unknown]
  - Bone cancer [Unknown]
  - Pulmonary embolism [Unknown]
  - Decreased appetite [Unknown]

NARRATIVE: CASE EVENT DATE: 2013
